FAERS Safety Report 13201504 (Version 1)
Quarter: 2017Q1

REPORT INFORMATION
  Report Type: Report from Study
  Country: GB (occurrence: GB)
  Receive Date: 20170209
  Receipt Date: 20170209
  Transmission Date: 20170428
  Serious: Yes (Hospitalization, Other)
  Sender: FDA-Public Use
  Company Number: GB-AMGEN-GBRSL2016167346

PATIENT
  Age: 74 Year
  Sex: Female

DRUGS (1)
  1. ARANESP [Suspect]
     Active Substance: DARBEPOETIN ALFA
     Indication: PRODUCT USED FOR UNKNOWN INDICATION
     Dosage: 30 MUG, UNK
     Route: 065

REACTIONS (5)
  - Fluid retention [Unknown]
  - Dyspnoea [Unknown]
  - Peripheral swelling [Unknown]
  - Hypertension [Unknown]
  - Arteriovenous fistula operation [Unknown]

NARRATIVE: CASE EVENT DATE: 201701
